FAERS Safety Report 10304589 (Version 2)
Quarter: 2014Q3

REPORT INFORMATION
  Report Type: Report from Study
  Country: IL (occurrence: IL)
  Receive Date: 20140715
  Receipt Date: 20140822
  Transmission Date: 20150326
  Serious: Yes (Hospitalization)
  Sender: FDA-Public Use
  Company Number: IL-BIOGENIDEC-2014BI069361

PATIENT
  Age: 26 Year
  Sex: Male

DRUGS (2)
  1. TECFIDERA [Suspect]
     Active Substance: DIMETHYL FUMARATE
     Indication: MULTIPLE SCLEROSIS
     Route: 048
     Dates: start: 20140324, end: 20140331
  2. TECFIDERA [Suspect]
     Active Substance: DIMETHYL FUMARATE
     Indication: MULTIPLE SCLEROSIS
     Route: 048
     Dates: start: 20140401, end: 20140729

REACTIONS (12)
  - Urinary incontinence [Unknown]
  - Balance disorder [Unknown]
  - Dysarthria [Unknown]
  - Coordination abnormal [Unknown]
  - Cognitive disorder [Unknown]
  - Abnormal behaviour [Unknown]
  - Multiple sclerosis relapse [Not Recovered/Not Resolved]
  - Ataxia [Unknown]
  - Posture abnormal [Unknown]
  - Fall [Recovered/Resolved]
  - Bradyphrenia [Unknown]
  - Marburg^s variant multiple sclerosis [Not Recovered/Not Resolved]

NARRATIVE: CASE EVENT DATE: 20140626
